FAERS Safety Report 15018787 (Version 1)
Quarter: 2018Q2

REPORT INFORMATION
  Report Type: Spontaneous
  Country: RO (occurrence: RO)
  Receive Date: 20180616
  Receipt Date: 20180616
  Transmission Date: 20180711
  Serious: Yes (Other)
  Sender: FDA-Public Use
  Company Number: RO-AUROBINDO-AUR-APL-2018-031341

PATIENT
  Age: 66 Year
  Sex: Male

DRUGS (4)
  1. RIBAVIRIN FILM COATED TABLETS [Suspect]
     Active Substance: RIBAVIRIN
     Indication: HEPATITIS C
     Dosage: ()
     Route: 065
  2. RIBAVIRIN FILM COATED TABLETS [Suspect]
     Active Substance: RIBAVIRIN
     Indication: HEPATIC CIRRHOSIS
     Dosage: 1 DF, QD
     Route: 048
     Dates: start: 20171027, end: 20180118
  3. LEDIPASVIR W/SOFOSBUVIR [Suspect]
     Active Substance: LEDIPASVIR\SOFOSBUVIR
     Indication: HEPATITIS C
     Dosage: ()
  4. LEDIPASVIR W/SOFOSBUVIR [Suspect]
     Active Substance: LEDIPASVIR\SOFOSBUVIR
     Indication: HEPATIC CIRRHOSIS
     Dosage: 1 DF, QD
     Route: 048
     Dates: start: 20171027, end: 20180118

REACTIONS (2)
  - Hepatitis C [Unknown]
  - Drug ineffective [Unknown]
